FAERS Safety Report 19123709 (Version 1)
Quarter: 2021Q2

REPORT INFORMATION
  Report Type: Spontaneous
  Country: FR (occurrence: FR)
  Receive Date: 20210412
  Receipt Date: 20210412
  Transmission Date: 20210717
  Serious: Yes (Life-Threatening)
  Sender: FDA-Public Use
  Company Number: FR-ALVOGEN-2021-ALVOGEN-116857

PATIENT
  Age: 88 Year
  Sex: Male

DRUGS (5)
  1. ATENOLOL. [Suspect]
     Active Substance: ATENOLOL
     Indication: INTENTIONAL OVERDOSE
     Dosage: 1500.0MG ONCE/SINGLE ADMINISTRATION
     Route: 048
     Dates: start: 20210223, end: 20210223
  2. SINTROM [Suspect]
     Active Substance: ACENOCOUMAROL
     Indication: INTENTIONAL OVERDOSE
     Route: 048
     Dates: start: 20210223, end: 20210223
  3. ZOPICLONE [Suspect]
     Active Substance: ZOPICLONE
     Indication: INTENTIONAL OVERDOSE
     Route: 048
     Dates: start: 20210223, end: 20210223
  4. METOCLOPRAMIDE. [Suspect]
     Active Substance: METOCLOPRAMIDE
     Indication: INTENTIONAL OVERDOSE
     Dosage: 200.0MG ONCE/SINGLE ADMINISTRATION
     Route: 048
     Dates: start: 20210223, end: 20210223
  5. TRAMADOL BASE [Suspect]
     Active Substance: TRAMADOL
     Indication: INTENTIONAL OVERDOSE
     Dosage: 1000.0MG ONCE/SINGLE ADMINISTRATION
     Route: 048
     Dates: start: 20210223, end: 20210223

REACTIONS (6)
  - Atrial fibrillation [Recovered/Resolved with Sequelae]
  - Respiratory depression [Recovered/Resolved with Sequelae]
  - Coma [Recovered/Resolved]
  - Hypotension [Recovered/Resolved with Sequelae]
  - Poisoning deliberate [Recovered/Resolved with Sequelae]
  - Epistaxis [Recovered/Resolved]

NARRATIVE: CASE EVENT DATE: 20210223
